FAERS Safety Report 6589016-7 (Version None)
Quarter: 2010Q1

REPORT INFORMATION
  Report Type: 
  Country: None (occurrence: None)
  Receive Date: 20100212
  Receipt Date: 20100124
  Transmission Date: 20100710
  Serious: Yes (Life-Threatening, Hospitalization)
  Sender: FDA-Public Use
  Company Number: A-US2009-32861

PATIENT
  Age: 21 Year
  Sex: Female

DRUGS (1)
  1. VENTAVIS [Suspect]
     Indication: PULMONARY ARTERIAL HYPERTENSION
     Dosage: 2.5 UG, RESPIRATORY
     Route: 055
     Dates: start: 20091119, end: 20091229

REACTIONS (1)
  - CIRCULATORY COLLAPSE [None]
